FAERS Safety Report 6443797-1 (Version None)
Quarter: 2009Q4

REPORT INFORMATION
  Report Type: 
  Country: None (occurrence: None)
  Receive Date: 20091117
  Receipt Date: 20091110
  Transmission Date: 20100525
  Serious: Yes (Other)
  Sender: FDA-Public Use
  Company Number: US-KINGPHARMUSA00001-K200901407

PATIENT
  Sex: Male
  Weight: 54.422 kg

DRUGS (2)
  1. EMBEDA [Suspect]
     Indication: BACK PAIN
     Dosage: 20 MG, BID
     Route: 048
     Dates: start: 20090901, end: 20091107
  2. ALBUTEROL [Concomitant]
     Indication: CHRONIC OBSTRUCTIVE PULMONARY DISEASE
     Dosage: UNK

REACTIONS (7)
  - DEHYDRATION [None]
  - DYSPEPSIA [None]
  - DYSPNOEA [None]
  - EATING DISORDER [None]
  - VOMITING [None]
  - WEIGHT DECREASED [None]
  - WITHDRAWAL SYNDROME [None]
